FAERS Safety Report 7343835-8 (Version None)
Quarter: 2011Q1

REPORT INFORMATION
  Report Type: 
  Country: None (occurrence: None)
  Receive Date: 20110310
  Receipt Date: 20110303
  Transmission Date: 20110831
  Serious: Yes (Death)
  Sender: FDA-Public Use
  Company Number: JP-ROCHE-762339

PATIENT
  Sex: Female

DRUGS (3)
  1. HERCEPTIN [Suspect]
     Indication: BREAST CANCER
     Dosage: FORM: INJECTION
     Route: 041
     Dates: start: 20101027, end: 20101027
  2. RESTAMIN [Concomitant]
     Route: 048
     Dates: start: 20101027, end: 20101027
  3. HEPARIN SODIUM [Concomitant]
     Route: 041
     Dates: start: 20101027, end: 20101027

REACTIONS (2)
  - BRAIN STEM HAEMORRHAGE [None]
  - ANAPHYLACTIC SHOCK [None]
